FAERS Safety Report 8853249 (Version 1)
Quarter: 2012Q4

REPORT INFORMATION
  Report Type: 
  Country: JP (occurrence: JP)
  Receive Date: 20121022
  Receipt Date: 20121022
  Transmission Date: 20130627
  Serious: Yes (Hospitalization)
  Sender: FDA-Public Use
  Company Number: JP-ASTRAZENECA-2012SE78990

PATIENT
  Age: 78 Year
  Sex: Female

DRUGS (4)
  1. SYMBICORT TURBUHALER [Suspect]
     Indication: ASTHMA
     Dosage: 2 DOSAGE FORM TWO TIMES A DAY
     Route: 055
  2. RESLIN [Concomitant]
     Dosage: Dose unknown
     Route: 065
  3. BROTIZOLAM [Concomitant]
     Dosage: Dose unknown
     Route: 065
  4. CRAVIT [Concomitant]
     Dosage: Dose unknown
     Route: 065

REACTIONS (3)
  - Pneumonia bacterial [Recovering/Resolving]
  - Dysphonia [Not Recovered/Not Resolved]
  - Laryngeal discomfort [Not Recovered/Not Resolved]
